FAERS Safety Report 9798737 (Version 1)
Quarter: 2014Q1

REPORT INFORMATION
  Report Type: Spontaneous
  Country: US (occurrence: US)
  Receive Date: 20140106
  Receipt Date: 20140106
  Transmission Date: 20141002
  Serious: No
  Sender: FDA-Public Use
  Company Number: US-GILEAD-2010-0030001

PATIENT
  Sex: Male

DRUGS (12)
  1. LETAIRIS [Suspect]
     Indication: PULMONARY ARTERIAL HYPERTENSION
     Route: 048
     Dates: start: 20100330, end: 20100525
  2. LETAIRIS [Suspect]
     Route: 048
     Dates: start: 20100525
  3. LASIX [Concomitant]
  4. GLIPIZIDE [Concomitant]
  5. METOPROLOL [Concomitant]
  6. FLOMAX [Concomitant]
  7. FINASTERIDE [Concomitant]
  8. ASA [Concomitant]
  9. WARFARIN [Concomitant]
  10. ALLOPURINOL [Concomitant]
  11. COLACE [Concomitant]
  12. METOLAZONE [Concomitant]

REACTIONS (3)
  - Blood glucose increased [Not Recovered/Not Resolved]
  - Increased appetite [Not Recovered/Not Resolved]
  - Weight decreased [Not Recovered/Not Resolved]
